FAERS Safety Report 10052543 (Version 3)
Quarter: 2014Q2

REPORT INFORMATION
  Report Type: Spontaneous
  Country: US (occurrence: None)
  Receive Date: 20140331
  Receipt Date: 20140417
  Transmission Date: 20141212
  Serious: Yes (Other)
  Sender: FDA-Public Use
  Company Number: 2014SGN00240

PATIENT
  Age: 66 Year
  Sex: Male
  Weight: 105.6 kg

DRUGS (30)
  1. BRENTUXIMAB VEDOTIN [Suspect]
     Indication: DIFFUSE LARGE B-CELL LYMPHOMA
     Route: 042
     Dates: start: 20131004, end: 20131205
  2. RITUXIMAB [Suspect]
     Indication: DIFFUSE LARGE B-CELL LYMPHOMA
     Route: 042
     Dates: start: 20130912, end: 20131205
  3. CYCLOPHOSPHAMIDE [Suspect]
     Indication: DIFFUSE LARGE B-CELL LYMPHOMA
     Route: 042
     Dates: start: 20130912, end: 20131205
  4. DOXORUBICIN [Suspect]
     Indication: DIFFUSE LARGE B-CELL LYMPHOMA
     Route: 042
     Dates: start: 20130912, end: 20131205
  5. VINCRISTINE [Suspect]
     Indication: DIFFUSE LARGE B-CELL LYMPHOMA
     Route: 042
     Dates: start: 20130912, end: 20131205
  6. PREDNISONE [Suspect]
     Indication: DIFFUSE LARGE B-CELL LYMPHOMA
     Dosage: QCYCLE
     Route: 048
     Dates: start: 20130912, end: 20131209
  7. ASPIRIN [Concomitant]
  8. ATIVAN (LORAZEPAM) [Concomitant]
  9. FUROSEMIDE (FUROSEMIDE SODIUM) [Concomitant]
  10. LISINOPRIL (LISINOPRIL DIHYDRATE) [Concomitant]
  11. METFORMIN (METFORMIN HYDROCHLORIDE) [Concomitant]
  12. METOPROLOL (METOPROLOL) [Concomitant]
  13. OMEPRAZOLE [Concomitant]
  14. POTASSIUM CHLORIDE [Concomitant]
  15. PRAVASTATIN [Concomitant]
  16. PROCHLORPERAZINE [Concomitant]
  17. TUMS (CALCIUM CARBONATE, MAGNESIUM CARBONATE, MAGNESIUM TRISILICATE) [Concomitant]
  18. TYLENOL (PARACETAMOL) [Concomitant]
  19. ONDANSETRON [Concomitant]
  20. ALLOPURINOL [Concomitant]
  21. DILTIAZEM (DILTIAZEM HYDROCHLORIDE) [Concomitant]
  22. ALBUTEROL [Concomitant]
  23. XARELTO (RIVAROXABAN) [Concomitant]
  24. PREDNISONE (PREDNISONE ACETATE) [Concomitant]
  25. NEULASTA (PEGFILGRASTIM) [Concomitant]
  26. LEVAQUIN (LEVOFLOXACIN) [Concomitant]
  27. MAGNESIUM ACETATE [Concomitant]
  28. FLUTICASONE PROPIONATE W/SALMETEROL [Concomitant]
  29. FLOMAX (TAMSULOSIN HYDROCHLORIDE) [Concomitant]
  30. PROTEIN SUPPLEMENTS [Concomitant]

REACTIONS (5)
  - Second primary malignancy [None]
  - Myelodysplastic syndrome [None]
  - Febrile neutropenia [None]
  - Diarrhoea [None]
  - Thrombocytopenia [None]
